FAERS Safety Report 8393468-X (Version None)
Quarter: 2012Q2

REPORT INFORMATION
  Report Type: 
  Country: None (occurrence: None)
  Receive Date: 20120529
  Receipt Date: 20120524
  Transmission Date: 20120825
  Serious: Yes (Death)
  Sender: FDA-Public Use
  Company Number: HU-ROCHE-1072080

PATIENT
  Sex: Female
  Weight: 105 kg

DRUGS (2)
  1. MABTHERA [Suspect]
     Indication: B-CELL LYMPHOMA
     Dosage: VOLUME OF LAST RITUXIMAB TAKEN 783.75 ML, CONCENTRATION- 375 MG/ML, LAST DOSE PRIOR TO SAE 23/MAR/20
     Route: 042
  2. BENDAMUSTINE [Suspect]
     Indication: B-CELL LYMPHOMA
     Dosage: LAST DOSE OF BENDAMUSTINE- 188.1 MG, LAST DOSE PRIOR TO SAE 24/MAR/2012
     Route: 042

REACTIONS (1)
  - ANAEMIA HAEMOLYTIC AUTOIMMUNE [None]
